FAERS Safety Report 19203129 (Version 4)
Quarter: 2021Q2

REPORT INFORMATION
  Report Type: Spontaneous
  Country: US (occurrence: US)
  Receive Date: 20210503
  Receipt Date: 20210515
  Transmission Date: 20210717
  Serious: No
  Sender: FDA-Public Use
  Company Number: US-SA-2021SA144408

PATIENT
  Age: 55 Year
  Sex: Female

DRUGS (2)
  1. DUPIXENT [Suspect]
     Active Substance: DUPILUMAB
     Dosage: 300 MG, QOW; EVERY OTHER FRIDAY VIA SKIN SCARIFICATION
     Dates: start: 20210416
  2. DUPIXENT [Suspect]
     Active Substance: DUPILUMAB
     Indication: DERMATITIS ATOPIC
     Dosage: UNK UNK, 1X (VIA SKIN SCARIFICATION)
     Dates: start: 20210402, end: 20210402

REACTIONS (4)
  - Drug ineffective [Unknown]
  - Skin swelling [Unknown]
  - Incorrect route of product administration [Unknown]
  - Dermatitis atopic [Unknown]

NARRATIVE: CASE EVENT DATE: 202104
